FAERS Safety Report 10283160 (Version 7)
Quarter: 2018Q4

REPORT INFORMATION
  Report Type: Spontaneous
  Country: FR (occurrence: FR)
  Receive Date: 20140708
  Receipt Date: 20181115
  Transmission Date: 20190204
  Serious: Yes (Death, Hospitalization, Disabling, Other)
  Sender: FDA-Public Use
  Company Number: FR-AMGEN INC.-FRASP2014049799

PATIENT
  Age: 79 Year
  Sex: Female

DRUGS (8)
  1. LIPANTHYL [Concomitant]
     Active Substance: FENOFIBRATE
     Dosage: 200 MUG, UNK
  2. PRETERAX [Concomitant]
     Active Substance: INDAPAMIDE\PERINDOPRIL
     Dosage: 2.5 MG/0.625 MG,
  3. CALCIDOSE [Concomitant]
     Active Substance: CALCIUM CARBONATE
     Dosage: UNK
  4. DIPROSTENE [Suspect]
     Active Substance: BETAMETHASONE DIPROPIONATE\BETAMETHASONE SODIUM PHOSPHATE
     Indication: BACK PAIN
  5. PROLIA [Suspect]
     Active Substance: DENOSUMAB
     Indication: OSTEOPOROTIC FRACTURE
     Dosage: 60 MG, UNK
     Route: 058
     Dates: start: 20140310, end: 20140310
  6. CALDINE [Concomitant]
     Active Substance: LACIDIPINE
     Dosage: 2 MG, UNK
  7. DIPROSTENE [Suspect]
     Active Substance: BETAMETHASONE DIPROPIONATE\BETAMETHASONE SODIUM PHOSPHATE
     Indication: BACK PAIN
     Dosage: UNK
     Route: 014
     Dates: start: 20140310, end: 20140310
  8. DIPROSTENE [Suspect]
     Active Substance: BETAMETHASONE DIPROPIONATE\BETAMETHASONE SODIUM PHOSPHATE
     Indication: BACK PAIN

REACTIONS (13)
  - Balance disorder [Fatal]
  - Coma [Unknown]
  - Muscular weakness [Fatal]
  - Dysphagia [Unknown]
  - Facial bones fracture [Unknown]
  - Amyotrophic lateral sclerosis [Fatal]
  - Wrist fracture [Recovered/Resolved]
  - Muscle rigidity [Unknown]
  - Upper motor neurone lesion [Unknown]
  - Dysarthria [Fatal]
  - Extrapyramidal disorder [Fatal]
  - Dyskinesia [Fatal]
  - Fall [Fatal]

NARRATIVE: CASE EVENT DATE: 20140325
